FAERS Safety Report 4629323-8 (Version None)
Quarter: 2005Q2

REPORT INFORMATION
  Report Type: 
  Country: None (occurrence: None)
  Receive Date: 20050405
  Receipt Date: 20050322
  Transmission Date: 20051028
  Serious: Yes (Life-Threatening, Hospitalization)
  Sender: FDA-Public Use
  Company Number: 2005-BP-04621AU

PATIENT
  Age: 74 Year
  Sex: Male

DRUGS (5)
  1. MOBIC [Suspect]
     Indication: OSTEOARTHRITIS
     Dosage: 15 MG (, 15MG DAILY) PO
     Route: 048
     Dates: start: 20041031
  2. GLIBENCLAMIDE (GLIBENCLAMIDE) (TA) [Suspect]
     Indication: DIABETES MELLITUS
     Dosage: 20 MG (, 20MG DAILY) PO
     Route: 048
  3. DIABEX (METFORMIN (HYDROCHLORIDE) (TA) [Suspect]
     Indication: DIABETES MELLITUS
     Dosage: 3 G (, 3 G DAILY) PO
     Route: 048
  4. FUROSEMIDE [Suspect]
     Indication: CARDIAC FAILURE ACUTE
     Dosage: 40 MG (,40MG DAILY) PO
     Route: 048
  5. TRITACE (RAMIPRIL) (KA) [Suspect]
     Indication: ESSENTIAL HYPERTENSION
     Dosage: 10 MG (, 10MG DAILY) PO
     Route: 048

REACTIONS (3)
  - HYPERKALAEMIA [None]
  - HYPOGLYCAEMIA [None]
  - RENAL FAILURE ACUTE [None]
